FAERS Safety Report 4301696-5 (Version None)
Quarter: 2004Q1

REPORT INFORMATION
  Report Type: 
  Country: None (occurrence: None)
  Receive Date: 20040217
  Receipt Date: 20040217
  Transmission Date: 20041129
  Serious: No
  Sender: FDA-Public Use
  Company Number: 7435

PATIENT
  Age: 68 Year
  Sex: Female

DRUGS (5)
  1. PETHIDINE [Suspect]
     Indication: PREMEDICATION
     Dosage: 25 MG ONCE IV
     Route: 042
  2. MIDAZOLAM HCL [Concomitant]
  3. IOPAMIDOL [Concomitant]
  4. METOPROLOL [Concomitant]
  5. CAPTOPRIL [Concomitant]

REACTIONS (3)
  - DRUG HYPERSENSITIVITY [None]
  - HEPATITIS [None]
  - PANCREATITIS [None]
